FAERS Safety Report 17498526 (Version 2)
Quarter: 2020Q2

REPORT INFORMATION
  Report Type: Report from Study
  Country: US (occurrence: US)
  Receive Date: 20200304
  Receipt Date: 20200413
  Transmission Date: 20200713
  Serious: Yes (Death, Hospitalization)
  Sender: FDA-Public Use
  Company Number: NVSC2020US062997

PATIENT
  Age: 83 Year
  Sex: Male
  Weight: 71.1 kg

DRUGS (2)
  1. DIGOXIN. [Suspect]
     Active Substance: DIGOXIN
     Indication: PRODUCT USED FOR UNKNOWN INDICATION
     Route: 065
  2. ENTRESTO [Suspect]
     Active Substance: SACUBITRIL\VALSARTAN
     Indication: PRODUCT USED FOR UNKNOWN INDICATION
     Dosage: UNK
     Route: 065

REACTIONS (4)
  - Cardiac failure chronic [Fatal]
  - Dyspnoea [Fatal]
  - Ischaemic cardiomyopathy [Fatal]
  - Cardiac death [Fatal]

NARRATIVE: CASE EVENT DATE: 20190505
